FAERS Safety Report 5256587-2 (Version None)
Quarter: 2007Q1

REPORT INFORMATION
  Report Type: 
  Country: None (occurrence: None)
  Receive Date: 20070306
  Receipt Date: 20061009
  Transmission Date: 20070707
  Serious: Yes (Hospitalization)
  Sender: FDA-Public Use
  Company Number: NO-ROCHE-466355

PATIENT
  Age: 55 Year
  Sex: Female

DRUGS (2)
  1. XELODA [Suspect]
     Dosage: ON DAY 1-14 EVERY THREE WEEKS
     Route: 048
     Dates: start: 20060816, end: 20060829
  2. TAXOTERE [Suspect]
     Route: 042
     Dates: start: 20060816, end: 20060816

REACTIONS (5)
  - CLOSTRIDIUM DIFFICILE COLITIS [None]
  - CYSTITIS HAEMORRHAGIC [None]
  - MOUTH ULCERATION [None]
  - PROCTITIS ULCERATIVE [None]
  - SKIN ULCER [None]
